FAERS Safety Report 11010686 (Version 2)
Quarter: 2015Q2

REPORT INFORMATION
  Report Type: Report from Study
  Country: NL (occurrence: NL)
  Receive Date: 20150410
  Receipt Date: 20150428
  Transmission Date: 20150821
  Serious: Yes (Hospitalization)
  Sender: FDA-Public Use
  Company Number: NL-ABBVIE-15P-114-1373380-00

PATIENT
  Age: 84 Year
  Sex: Male
  Weight: 71 kg

DRUGS (1)
  1. DUODOPA [Suspect]
     Active Substance: CARBIDOPA\LEVODOPA
     Indication: PARKINSON^S DISEASE
     Dosage: GEL 20/5MG/ML
     Route: 050
     Dates: start: 20150331, end: 20150406

REACTIONS (4)
  - Unintentional medical device removal [Unknown]
  - Tremor [Not Recovered/Not Resolved]
  - Pneumonia [Recovered/Resolved]
  - Confusional state [Not Recovered/Not Resolved]

NARRATIVE: CASE EVENT DATE: 20150406
